FAERS Safety Report 9594928 (Version 2)
Quarter: 2013Q4

REPORT INFORMATION
  Report Type: Spontaneous
  Country: US (occurrence: US)
  Receive Date: 20131004
  Receipt Date: 20131004
  Transmission Date: 20140711
  Serious: Yes (Other)
  Sender: FDA-Public Use
  Company Number: US-NAPPMUNDI-USA-2012-0093958

PATIENT
  Age: 57 Year
  Sex: Female

DRUGS (1)
  1. BUTRANS [Suspect]
     Indication: BACK PAIN
     Dosage: UNK UNK, SEE TEXT
     Route: 062
     Dates: start: 201208, end: 201208

REACTIONS (2)
  - Hallucination, visual [Recovered/Resolved]
  - Road traffic accident [Recovered/Resolved]
